FAERS Safety Report 11012418 (Version 1)
Quarter: 2015Q2

REPORT INFORMATION
  Report Type: Spontaneous
  Country: US (occurrence: None)
  Receive Date: 20150410
  Receipt Date: 20150410
  Transmission Date: 20150821
  Serious: Yes (Hospitalization)
  Sender: FDA-Public Use
  Company Number: None

PATIENT
  Age: 28 Year
  Sex: Male
  Weight: 114.5 kg

DRUGS (2)
  1. AZITHROMYCIN [Suspect]
     Active Substance: AZITHROMYCIN ANHYDROUS
     Dosage: MG   PO
     Route: 048
     Dates: start: 20141229, end: 20150105
  2. OSELTAMIVIR [Suspect]
     Active Substance: OSELTAMIVIR
     Dosage: MG  BID  PO
     Route: 048
     Dates: start: 20141229, end: 20150115

REACTIONS (7)
  - Drug-induced liver injury [None]
  - Alanine aminotransferase increased [None]
  - Hepatitis viral [None]
  - Blood alkaline phosphatase increased [None]
  - Aspartate aminotransferase increased [None]
  - Blood bilirubin increased [None]
  - Dyspepsia [None]

NARRATIVE: CASE EVENT DATE: 20150115
